FAERS Safety Report 8162680 (Version 3)
Quarter: 2015Q4

REPORT INFORMATION
  Report Type: Spontaneous
  Country: KR (occurrence: KR)
  Receive Date: 20110929
  Receipt Date: 20151001
  Transmission Date: 20160305
  Serious: Yes (Death, Hospitalization, Other)
  Sender: FDA-Public Use
  Company Number: KR-ASTRAZENECA-2011SE57597

PATIENT
  Age: 29 Year
  Sex: Female

DRUGS (1)
  1. PROPOFOL. [Suspect]
     Active Substance: PROPOFOL
     Indication: ANAESTHESIA PROCEDURE
     Route: 040

REACTIONS (3)
  - Hyperkalaemia [Fatal]
  - Cardio-respiratory arrest [Fatal]
  - Ventricular fibrillation [Fatal]
